FAERS Safety Report 6947421-0 (Version None)
Quarter: 2010Q3

REPORT INFORMATION
  Report Type: 
  Country: None (occurrence: None)
  Receive Date: 20100827
  Receipt Date: 20090914
  Transmission Date: 20110219
  Serious: No
  Sender: FDA-Public Use
  Company Number: US-ABBOTT-09P-163-0596987-00

PATIENT
  Sex: Male
  Weight: 88.53 kg

DRUGS (2)
  1. NIASPAN [Suspect]
     Indication: HIGH DENSITY LIPOPROTEIN DECREASED
     Dosage: AT BEDTIME
     Dates: start: 20090601
  2. NIASPAN [Suspect]
     Dosage: 2 TABLETS AT BEDTIME

REACTIONS (2)
  - FEELING HOT [None]
  - PRURITUS [None]
